FAERS Safety Report 15447943 (Version 1)
Quarter: 2018Q3

REPORT INFORMATION
  Report Type: Spontaneous
  Country: SE (occurrence: SE)
  Receive Date: 20180928
  Receipt Date: 20180928
  Transmission Date: 20181010
  Serious: Yes (Hospitalization)
  Sender: FDA-Public Use
  Company Number: SE-BAUSCH-BL-2018-026120

PATIENT
  Age: 61 Year
  Sex: Female

DRUGS (1)
  1. ALDARA [Suspect]
     Active Substance: IMIQUIMOD
     Indication: ACTINIC KERATOSIS
     Route: 065

REACTIONS (2)
  - General physical health deterioration [Recovered/Resolved]
  - Administration site ulcer [Recovered/Resolved]

NARRATIVE: CASE EVENT DATE: 20180402
